FAERS Safety Report 4957341-9 (Version None)
Quarter: 2006Q1

REPORT INFORMATION
  Report Type: 
  Country: None (occurrence: None)
  Receive Date: 20060327
  Receipt Date: 20060309
  Transmission Date: 20060701
  Serious: Yes (Death)
  Sender: FDA-Public Use
  Company Number: 6021189

PATIENT
  Age: 6 Year
  Sex: Male

DRUGS (3)
  1. LORATADINE [Suspect]
     Dosage: 10 MG, 1 IN 1 D, ORAL
     Route: 048
  2. PIN WORM MEDICATION [Concomitant]
  3. VITAMINS [Concomitant]

REACTIONS (2)
  - DRUG LEVEL INCREASED [None]
  - VOMITING [None]
